FAERS Safety Report 7029667-9 (Version None)
Quarter: 2010Q4

REPORT INFORMATION
  Report Type: 
  Country: None (occurrence: None)
  Receive Date: 20101005
  Receipt Date: 20100927
  Transmission Date: 20110411
  Serious: Yes (Hospitalization, Other)
  Sender: FDA-Public Use
  Company Number: JP-MERCK-1009USA04267

PATIENT
  Age: 63 Year
  Sex: Female

DRUGS (3)
  1. PEPCID [Suspect]
     Route: 048
     Dates: end: 20100101
  2. DOXAZOSIN MESYLATE [Concomitant]
     Route: 048
  3. ASPIRIN [Concomitant]
     Route: 048

REACTIONS (3)
  - ESSENTIAL THROMBOCYTHAEMIA [None]
  - SINUSITIS [None]
  - TUBULOINTERSTITIAL NEPHRITIS [None]
